FAERS Safety Report 24255298 (Version 4)
Quarter: 2025Q2

REPORT INFORMATION
  Report Type: Spontaneous
  Country: US (occurrence: US)
  Receive Date: 20240827
  Receipt Date: 20250411
  Transmission Date: 20250716
  Serious: Yes (Other)
  Sender: SANOFI AVENTIS
  Company Number: US-SA-SAC20240817001201

PATIENT
  Age: 55 Year
  Sex: Female
  Weight: 82.735 kg

DRUGS (5)
  1. KEVZARA [Suspect]
     Active Substance: SARILUMAB
     Indication: Polymyalgia rheumatica
     Dosage: 200 MG, QOW
     Route: 058
     Dates: start: 20240808
  2. XANAX [Concomitant]
     Active Substance: ALPRAZOLAM
  3. ADVIL [Concomitant]
     Active Substance: IBUPROFEN
  4. ZYRTEC [Concomitant]
     Active Substance: CETIRIZINE HYDROCHLORIDE
  5. CETIRIZINE HYDROCHLORIDE [Concomitant]
     Active Substance: CETIRIZINE HYDROCHLORIDE

REACTIONS (7)
  - Polymyalgia rheumatica [Unknown]
  - Rash pruritic [Not Recovered/Not Resolved]
  - Ephelides [Not Recovered/Not Resolved]
  - Gait disturbance [Unknown]
  - Loss of personal independence in daily activities [Recovered/Resolved]
  - Pain [Unknown]
  - Drug ineffective [Unknown]

NARRATIVE: CASE EVENT DATE: 20240801
